FAERS Safety Report 6264869-0 (Version None)
Quarter: 2009Q3

REPORT INFORMATION
  Report Type: 
  Country: None (occurrence: None)
  Receive Date: 20090713
  Receipt Date: 20070427
  Transmission Date: 20100115
  Serious: Yes (Hospitalization, Other)
  Sender: FDA-Public Use
  Company Number: US-ASTRAZENECA-2006UW11580

PATIENT
  Age: 55 Year
  Sex: Female
  Weight: 68.5 kg

DRUGS (15)
  1. SEROQUEL [Suspect]
     Route: 048
  2. ZYPREXA [Suspect]
     Route: 065
  3. RISPERDAL [Concomitant]
  4. GEODON [Concomitant]
     Route: 065
  5. PAXIL [Concomitant]
     Indication: NERVOUSNESS
     Route: 065
  6. ABILIFY [Concomitant]
     Route: 048
  7. DEPAKOTE [Concomitant]
     Dosage: 1000 MG TWO TAB H.S
     Route: 065
  8. ACTOS [Concomitant]
     Route: 065
  9. LASIX [Concomitant]
     Route: 065
  10. TYLENOL [Concomitant]
     Dosage: 500 MG Q 4 HOURS PRN
     Route: 065
  11. ATARAX [Concomitant]
     Indication: SLEEP DISORDER
     Route: 065
  12. MACROBID [Concomitant]
     Indication: CYSTITIS
     Route: 065
  13. PREMARIN [Concomitant]
     Indication: MENOPAUSAL SYMPTOMS
     Route: 065
  14. DETROL [Concomitant]
     Indication: POLLAKIURIA
     Dosage: 4 MG DISPENSED AND 5 MG DAILY
     Route: 065
  15. AUGMENTIN [Concomitant]
     Route: 048

REACTIONS (5)
  - DIABETES MELLITUS [None]
  - DIABETIC FOOT [None]
  - HERNIA [None]
  - KETOACIDOSIS [None]
  - PANCREATITIS [None]
